FAERS Safety Report 5408297-6 (Version None)
Quarter: 2007Q3

REPORT INFORMATION
  Report Type: 
  Country: None (occurrence: None)
  Receive Date: 20070808
  Receipt Date: 20070730
  Transmission Date: 20080115
  Serious: Yes (Hospitalization)
  Sender: FDA-Public Use
  Company Number: IT-BAXTER-2007BH002738

PATIENT
  Age: 73 Year
  Sex: Male

DRUGS (8)
  1. EXTRANEAL [Suspect]
     Indication: PERITONEAL DIALYSIS
     Route: 033
     Dates: start: 20060401, end: 20070215
  2. STANDARD SOLUTION WITH GLUCOSE 1.36% [Concomitant]
  3. ASPIRIN [Concomitant]
     Indication: THROMBOSIS PROPHYLAXIS
     Dates: start: 20060201, end: 20070215
  4. LASIX [Concomitant]
     Indication: POLYURIA
     Route: 042
     Dates: start: 20060201, end: 20070215
  5. CARVEDILOL [Concomitant]
     Indication: ESSENTIAL HYPERTENSION
     Route: 048
     Dates: start: 20060201, end: 20070215
  6. RENAGEL [Concomitant]
     Indication: HYPERPHOSPHATAEMIA
     Route: 048
     Dates: start: 20060801, end: 20070215
  7. CALCIJEX [Concomitant]
     Indication: HYPOCALCAEMIA
     Route: 042
     Dates: start: 20060801, end: 20070215
  8. HUMULIN R [Concomitant]
     Indication: TYPE 1 DIABETES MELLITUS
     Route: 058
     Dates: start: 20060101, end: 20070215

REACTIONS (1)
  - PERIVASCULAR DERMATITIS [None]
